FAERS Safety Report 10416839 (Version 1)
Quarter: 2014Q3

REPORT INFORMATION
  Report Type: Spontaneous
  Country: US (occurrence: US)
  Receive Date: 20140828
  Receipt Date: 20140828
  Transmission Date: 20150326
  Serious: No
  Sender: FDA-Public Use
  Company Number: US-BAYER-2014-129113

PATIENT
  Age: 47 Year
  Sex: Male

DRUGS (1)
  1. GADAVIST [Suspect]
     Active Substance: GADOBUTROL
     Indication: NUCLEAR MAGNETIC RESONANCE IMAGING
     Dosage: 8 ML, ONCE
     Route: 042
     Dates: start: 20140826, end: 20140826

REACTIONS (4)
  - Pruritus [None]
  - Flushing [None]
  - Urticaria [None]
  - Contrast media allergy [None]

NARRATIVE: CASE EVENT DATE: 20140826
